FAERS Safety Report 17854715 (Version 1)
Quarter: 2020Q2

REPORT INFORMATION
  Report Type: Spontaneous
  Country: US (occurrence: US)
  Receive Date: 20200602
  Receipt Date: 20200602
  Transmission Date: 20200714
  Serious: Yes (Life-Threatening)
  Sender: FDA-Public Use
  Company Number: None

PATIENT
  Age: 88 Year
  Sex: Female
  Weight: 83.1 kg

DRUGS (2)
  1. IDARUCIZUMAB [Concomitant]
     Active Substance: IDARUCIZUMAB
     Dates: start: 20200531, end: 20200531
  2. IDARUCIZUMAB [Suspect]
     Active Substance: IDARUCIZUMAB
     Indication: HAEMORRHAGE
     Dosage: ?          OTHER FREQUENCY:ONCE;?
     Route: 042
     Dates: start: 20200531, end: 20200531

REACTIONS (4)
  - Facial paralysis [None]
  - Thrombosis [None]
  - Hemiparesis [None]
  - Dysarthria [None]

NARRATIVE: CASE EVENT DATE: 20200601
